FAERS Safety Report 10368206 (Version 1)
Quarter: 2014Q3

REPORT INFORMATION
  Report Type: Spontaneous
  Country: IN (occurrence: IN)
  Receive Date: 20140807
  Receipt Date: 20140807
  Transmission Date: 20150326
  Serious: Yes (Hospitalization)
  Sender: FDA-Public Use
  Company Number: IN-GILEAD-2014-0110777

PATIENT
  Age: 43 Year
  Sex: Male

DRUGS (8)
  1. EMTRIVA [Suspect]
     Active Substance: EMTRICITABINE
     Indication: HIV INFECTION
     Dosage: UNK
     Route: 065
  2. EFAVIRENZ [Suspect]
     Active Substance: EFAVIRENZ
     Indication: HIV INFECTION
     Dosage: UNK
     Route: 065
  3. MILTEFOSINE [Concomitant]
     Active Substance: MILTEFOSINE
     Indication: PRODUCT USED FOR UNKNOWN INDICATION
     Dosage: DIVIDED IN 2 DOSES
     Route: 065
  4. COTRIMOXAZOLE [Concomitant]
     Active Substance: SULFAMETHOXAZOLE\TRIMETHOPRIM
     Indication: PROPHYLAXIS
  5. MILTEFOSINE [Concomitant]
     Active Substance: MILTEFOSINE
     Dosage: 50 MG, BID
     Route: 048
  6. AMBISOME [Suspect]
     Active Substance: AMPHOTERICIN B
     Indication: VISCERAL LEISHMANIASIS
     Dosage: 10 MG/KG, TOTAL
     Route: 042
  7. AMBISOME [Suspect]
     Active Substance: AMPHOTERICIN B
     Dosage: DIVIDED IN 6 DOSES OF 5MG/KG
     Route: 042
  8. VIREAD [Suspect]
     Active Substance: TENOFOVIR DISOPROXIL FUMARATE
     Indication: HIV INFECTION
     Dosage: UNK
     Route: 065

REACTIONS (2)
  - Drug ineffective [Recovered/Resolved]
  - CD4 lymphocytes decreased [Recovered/Resolved]
